FAERS Safety Report 4528909-9 (Version None)
Quarter: 2004Q4

REPORT INFORMATION
  Report Type: 
  Country: None (occurrence: None)
  Receive Date: 20041215
  Receipt Date: 20041215
  Transmission Date: 20050328
  Serious: Yes (Life-Threatening)
  Sender: FDA-Public Use
  Company Number: None

PATIENT
  Age: 11 Year
  Sex: Female
  Weight: 40 kg

DRUGS (1)
  1. MILRONONE [Suspect]
     Indication: CONGESTIVE CARDIOMYOPATHY
     Dosage: 400 MCG
     Dates: start: 20041126

REACTIONS (3)
  - CARDIAC DISORDER [None]
  - HYPOTENSION [None]
  - INFUSION RELATED REACTION [None]
